FAERS Safety Report 5160089-1 (Version None)
Quarter: 2006Q4

REPORT INFORMATION
  Report Type: 
  Country: None (occurrence: None)
  Receive Date: 20061129
  Receipt Date: 20060921
  Transmission Date: 20070319
  Serious: No
  Sender: FDA-Public Use
  Company Number: 2006/05021

PATIENT
  Age: 62 Year
  Sex: Female

DRUGS (1)
  1. BUPROPION HCL [Suspect]
     Indication: DEPRESSION
     Route: 048
     Dates: start: 20060201

REACTIONS (4)
  - DEPRESSION [None]
  - MEDICATION RESIDUE [None]
  - NIGHT SWEATS [None]
  - PHARMACEUTICAL PRODUCT COMPLAINT [None]
